FAERS Safety Report 9153555 (Version 1)
Quarter: 2013Q1

REPORT INFORMATION
  Report Type: Report from Study
  Country: JP (occurrence: JP)
  Receive Date: 20130311
  Receipt Date: 20130311
  Transmission Date: 20140127
  Serious: Yes (Hospitalization, Other)
  Sender: FDA-Public Use
  Company Number: JP-VERTEX PHARMACEUTICAL INC.-2012-023810

PATIENT
  Age: 54 Year
  Sex: Male

DRUGS (14)
  1. VX-950 (TELAPREVIR) [Suspect]
     Indication: CHRONIC HEPATITIS C
     Dosage: 1500 MG, QD
     Route: 048
     Dates: start: 20120711, end: 20120829
  2. VX-950 (TELAPREVIR) [Suspect]
     Dosage: 1000 MG, QD
     Route: 048
     Dates: start: 20120829, end: 20120831
  3. VX-950 (TELAPREVIR) [Suspect]
     Dosage: 750 MG, QD
     Route: 048
     Dates: start: 20120831
  4. REBETOL [Suspect]
     Indication: CHRONIC HEPATITIS C
     Dosage: 400 MG, QD
     Route: 048
     Dates: start: 20120711, end: 20120831
  5. REBETOL [Suspect]
     Dosage: 200 MG, QD
     Route: 048
     Dates: start: 20120831
  6. REBETOL [Suspect]
     Dosage: 400 MG, QD
     Route: 048
     Dates: end: 20121109
  7. PEGINTERFERON ALFA-2B [Suspect]
     Indication: CHRONIC HEPATITIS C
     Dosage: 1.5 ?G/KG, QW
     Route: 058
     Dates: start: 20120711, end: 20120828
  8. PEGINTERFERON ALFA-2B [Suspect]
     Dosage: 0.7 ?G/KG, QW
     Route: 058
     Dates: start: 20120829, end: 20121109
  9. PRORENAL [Concomitant]
     Dosage: 20 ?G, QD
     Route: 048
  10. MYONAL [Concomitant]
     Dosage: 100 MG, QD
     Route: 048
  11. NESINA [Concomitant]
     Dosage: 25 MG, QD
     Route: 048
  12. DEPAS [Concomitant]
     Dosage: 1 MG, QD
     Route: 048
  13. URINORM [Concomitant]
     Dosage: 50 MG, QD
     Route: 048
     Dates: start: 20120713
  14. LOXOPROFEN [Concomitant]
     Dosage: 120 MG, QD
     Route: 048

REACTIONS (2)
  - Retinopathy [Recovered/Resolved]
  - Interstitial lung disease [Recovered/Resolved]
